FAERS Safety Report 14302563 (Version 1)
Quarter: 2017Q4

REPORT INFORMATION
  Report Type: Spontaneous
  Country: US (occurrence: US)
  Receive Date: 20171219
  Receipt Date: 20171219
  Transmission Date: 20180321
  Serious: No
  Sender: FDA-Public Use
  Company Number: US-RECKITT BENCKISER HEALTHCARE INT LIMITED-RB-94348-2017

PATIENT
  Age: 70 Year
  Sex: Female

DRUGS (2)
  1. DELSYM [Suspect]
     Active Substance: DEXTROMETHORPHAN
     Indication: COUGH
     Dosage: UNK, BID
     Route: 065
     Dates: start: 20170621, end: 20170622
  2. DELSYM [Suspect]
     Active Substance: DEXTROMETHORPHAN
     Dosage: TOOK OVERDOSE OF PRODUCT
     Route: 065
     Dates: start: 20170622

REACTIONS (3)
  - Feeling abnormal [Not Recovered/Not Resolved]
  - Overdose [Not Recovered/Not Resolved]
  - Dizziness [Not Recovered/Not Resolved]

NARRATIVE: CASE EVENT DATE: 20170622
